FAERS Safety Report 5959823-X (Version None)
Quarter: 2008Q4

REPORT INFORMATION
  Report Type: 
  Country: None (occurrence: None)
  Receive Date: 20081120
  Receipt Date: 20081114
  Transmission Date: 20090506
  Serious: Yes (Other)
  Sender: FDA-Public Use
  Company Number: B0535101A

PATIENT
  Age: 57 Year
  Sex: Female

DRUGS (5)
  1. PAXIL [Suspect]
     Indication: BIPOLAR II DISORDER
     Dosage: 10MG PER DAY
     Route: 048
  2. SOLANAX [Suspect]
     Route: 048
  3. RIVOTRIL [Suspect]
     Route: 048
  4. DEPAKENE [Suspect]
     Route: 048
  5. LENDORMIN [Suspect]
     Route: 048

REACTIONS (5)
  - ABNORMAL SENSATION IN EYE [None]
  - BLEPHAROSPASM [None]
  - DRY EYE [None]
  - EYELID FUNCTION DISORDER [None]
  - MEIGE'S SYNDROME [None]
